FAERS Safety Report 7971431-8 (Version None)
Quarter: 2011Q4

REPORT INFORMATION
  Report Type: 
  Country: None (occurrence: None)
  Receive Date: 20111123
  Receipt Date: 20110920
  Transmission Date: 20120403
  Serious: Yes (Other)
  Sender: FDA-Public Use
  Company Number: 1000024059

PATIENT
  Age: 82 Year
  Sex: Male

DRUGS (7)
  1. DALIRESP [Suspect]
     Indication: CHRONIC OBSTRUCTIVE PULMONARY DISEASE
     Dosage: 500 MCG (500 MCG, 1 IN 1 D), ORAL
     Route: 048
     Dates: start: 20110721, end: 20110916
  2. DIGOXIN [Concomitant]
  3. CARDIZEM [Concomitant]
  4. SPIRIVA [Concomitant]
  5. ASPIRIN [Concomitant]
  6. ADVAIR HFA [Concomitant]
  7. PROTONIX (PANTOPRAZOLE SODIUM SESQUIHYDRATE) [Concomitant]

REACTIONS (2)
  - DECREASED APPETITE [None]
  - WEIGHT DECREASED [None]
